FAERS Safety Report 13759789 (Version 1)
Quarter: 2017Q3

REPORT INFORMATION
  Report Type: Spontaneous
  Country: US (occurrence: US)
  Receive Date: 20170717
  Receipt Date: 20170717
  Transmission Date: 20171127
  Serious: Yes (Other)
  Sender: FDA-Public Use
  Company Number: US-LUNDBECK-DKLU2034027

PATIENT
  Age: 3 Month
  Sex: Male

DRUGS (1)
  1. SABRIL [Suspect]
     Active Substance: VIGABATRIN
     Indication: INFANTILE SPASMS
     Route: 048
     Dates: start: 20170310

REACTIONS (2)
  - Drug dose omission [Recovered/Resolved]
  - Drug withdrawal convulsions [Unknown]

NARRATIVE: CASE EVENT DATE: 201704
